FAERS Safety Report 11260907 (Version 1)
Quarter: 2015Q3

REPORT INFORMATION
  Report Type: Report from Study
  Country: US (occurrence: US)
  Receive Date: 20150710
  Receipt Date: 20150710
  Transmission Date: 20151125
  Serious: Yes (Other)
  Sender: FDA-Public Use
  Company Number: US-SA-2015SA076333

PATIENT
  Sex: Male

DRUGS (7)
  1. OMEGA 3 [Concomitant]
     Active Substance: OMEGA-3 FATTY ACIDS
  2. FABRAZYME [Suspect]
     Active Substance: AGALSIDASE BETA
     Indication: FABRY^S DISEASE
     Route: 041
     Dates: start: 20121113, end: 20150429
  3. ATORVASTATIN [Concomitant]
     Active Substance: ATORVASTATIN
  4. ZANTAC [Concomitant]
     Active Substance: RANITIDINE HYDROCHLORIDE
     Dosage: 150MG TWICE A DAY OR 300MG ONCE A DAY
  5. FABRAZYME [Suspect]
     Active Substance: AGALSIDASE BETA
     Indication: FABRY^S DISEASE
     Route: 041
     Dates: start: 20150629, end: 20150629
  6. VITAMIN D [Concomitant]
     Active Substance: CHOLECALCIFEROL
  7. BABY ASPIRIN [Concomitant]
     Active Substance: ASPIRIN

REACTIONS (6)
  - Pain in extremity [Recovering/Resolving]
  - Labile blood pressure [Recovering/Resolving]
  - Atrial fibrillation [Recovering/Resolving]
  - Feeling cold [Recovering/Resolving]
  - Seizure [Recovering/Resolving]
  - Infusion related reaction [Unknown]

NARRATIVE: CASE EVENT DATE: 2013
